FAERS Safety Report 14487482 (Version 1)
Quarter: 2018Q1

REPORT INFORMATION
  Report Type: Spontaneous
  Country: US (occurrence: US)
  Receive Date: 20180204
  Receipt Date: 20180204
  Transmission Date: 20180509
  Serious: Yes (Other)
  Sender: FDA-Public Use
  Company Number: None

PATIENT
  Age: 60 Year
  Sex: Female
  Weight: 90 kg

DRUGS (8)
  1. VICTOZA [Concomitant]
     Active Substance: LIRAGLUTIDE
  2. CONTRAVE [Suspect]
     Active Substance: BUPROPION HYDROCHLORIDE\NALTREXONE HYDROCHLORIDE
     Indication: OBESITY
     Dosage: ?          QUANTITY:2 TABLET(S);?
     Route: 048
     Dates: start: 20171016, end: 20171116
  3. METROPOPAL [Concomitant]
  4. DIOVAN [Concomitant]
     Active Substance: VALSARTAN
  5. LANTUS [Concomitant]
     Active Substance: INSULIN GLARGINE
  6. SIMVISTATIN [Concomitant]
     Active Substance: SIMVASTATIN
  7. BABY ASPIRIN [Concomitant]
     Active Substance: ASPIRIN
  8. METFORMIN [Concomitant]
     Active Substance: METFORMIN HYDROCHLORIDE

REACTIONS (1)
  - Tinnitus [None]

NARRATIVE: CASE EVENT DATE: 20171116
